FAERS Safety Report 13264050 (Version 1)
Quarter: 2017Q1

REPORT INFORMATION
  Report Type: Spontaneous
  Country: US (occurrence: US)
  Receive Date: 20170223
  Receipt Date: 20170223
  Transmission Date: 20170428
  Serious: Yes (Hospitalization)
  Sender: FDA-Public Use
  Company Number: US-BRACCO-013089

PATIENT
  Age: 68 Year
  Sex: Female

DRUGS (1)
  1. ISOVUE 370 [Suspect]
     Active Substance: IOPAMIDOL
     Indication: COMPUTERISED TOMOGRAM
     Route: 042
     Dates: start: 20160113, end: 20160113

REACTIONS (5)
  - Extravasation [Recovered/Resolved]
  - Application site vesicles [Recovered/Resolved]
  - Administration site swelling [Recovered/Resolved]
  - Hypoaesthesia [Recovered/Resolved]
  - Paraesthesia [Recovered/Resolved]

NARRATIVE: CASE EVENT DATE: 20160113
